FAERS Safety Report 4665252-1 (Version None)
Quarter: 2005Q2

REPORT INFORMATION
  Report Type: 
  Country: None (occurrence: None)
  Receive Date: 20050517
  Receipt Date: 20050124
  Transmission Date: 20051028
  Serious: No
  Sender: FDA-Public Use
  Company Number: S05-USA-00401-01

PATIENT
  Age: 70 Year
  Sex: Male

DRUGS (4)
  1. NAMENDA [Suspect]
     Indication: DEMENTIA ALZHEIMER'S TYPE
     Dosage: 5 MG QD PO
     Route: 048
     Dates: start: 20050114, end: 20050120
  2. NAMENDA [Suspect]
     Indication: DEMENTIA ALZHEIMER'S TYPE
     Dosage: 10 MG QD PO
     Route: 048
     Dates: start: 20050121, end: 20050122
  3. PREDNISONE TAB [Suspect]
     Indication: COLITIS ULCERATIVE
     Dosage: 40 MG QD PO
     Route: 048
     Dates: start: 20050112
  4. IMURAN [Concomitant]

REACTIONS (1)
  - OEDEMA PERIPHERAL [None]
